FAERS Safety Report 16568036 (Version 6)
Quarter: 2020Q4

REPORT INFORMATION
  Report Type: Spontaneous
  Country: AT (occurrence: AT)
  Receive Date: 20190712
  Receipt Date: 20201111
  Transmission Date: 20210113
  Serious: Yes (Other)
  Sender: FDA-Public Use
  Company Number: AT-SA-2019SA186862

PATIENT

DRUGS (2)
  1. LEMTRADA [Suspect]
     Active Substance: ALEMTUZUMAB
     Indication: RELAPSING-REMITTING MULTIPLE SCLEROSIS
     Dosage: 12 MG
     Route: 041
     Dates: start: 20180317, end: 20180319
  2. LEMTRADA [Suspect]
     Active Substance: ALEMTUZUMAB
     Dosage: 12 MG
     Route: 041
     Dates: start: 20170329, end: 20170402

REACTIONS (9)
  - Blood thyroid stimulating hormone increased [Recovered/Resolved]
  - Drug exposure before pregnancy [Unknown]
  - Anti-thyroid antibody positive [Recovered/Resolved]
  - Autoimmune thyroiditis [Recovered/Resolved]
  - Thyroxine free decreased [Recovered/Resolved]
  - Petechiae [Recovered/Resolved]
  - Skin haemorrhage [Recovered/Resolved]
  - Haematoma [Recovered/Resolved]
  - Immune thrombocytopenia [Recovered/Resolved]

NARRATIVE: CASE EVENT DATE: 201807
